FAERS Safety Report 9546996 (Version 1)
Quarter: 2013Q2

REPORT INFORMATION
  Report Type: Spontaneous
  Country: US (occurrence: None)
  Receive Date: 20130606
  Receipt Date: 20130606
  Transmission Date: 20140414
  Serious: Yes (Other)
  Sender: FDA-Public Use
  Company Number: 163-POMAL-13050747

PATIENT
  Age: 81 Year
  Sex: Female

DRUGS (9)
  1. POMALYST [Suspect]
     Indication: PLASMA CELL MYELOMA
     Dosage: 4 MG, 21 IN 21 D, PO
     Route: 048
     Dates: start: 20130418
  2. CALCIUM (CALCIUM) [Concomitant]
  3. CETIRIZINE HCL (CETIRIZINE HYDROCHLORIDE) [Concomitant]
  4. COUMADIN (WARFARIN SODIUM) [Concomitant]
  5. GLUCOSAMINE-CHONDROITIN(GLUCOSAMINE W/CHONDROITIN SULDATE) [Concomitant]
  6. MORPHINE SULFATE CR (MORPHINE SULFATE) [Concomitant]
  7. MULTIVITAMINS WITH MINERALS (MULTIVITAMINS WITH MINERALS) [Concomitant]
  8. OCUVITE ADULT FORMUA (OCUVITE ADULT 50+) [Concomitant]
  9. TYLENOL 8 HOUR (PARACETAMOL) [Concomitant]

REACTIONS (2)
  - Hypoaesthesia [None]
  - Nausea [None]
